FAERS Safety Report 16117264 (Version 1)
Quarter: 2019Q1

REPORT INFORMATION
  Report Type: Spontaneous
  Country: US (occurrence: US)
  Receive Date: 20190326
  Receipt Date: 20190326
  Transmission Date: 20190418
  Serious: No
  Sender: FDA-Public Use
  Company Number: US-TEVA-2019-US-1029680

PATIENT
  Sex: Male

DRUGS (2)
  1. OXYBUTYNIN. [Suspect]
     Active Substance: OXYBUTYNIN CHLORIDE
     Indication: ABDOMINAL RIGIDITY
     Route: 065
  2. TROSPIUM [Suspect]
     Active Substance: TROSPIUM
     Indication: ABDOMINAL RIGIDITY
     Route: 065

REACTIONS (4)
  - Dizziness [Unknown]
  - Malaise [Unknown]
  - Product use complaint [Unknown]
  - Product physical issue [Unknown]
